FAERS Safety Report 6677258-1 (Version None)
Quarter: 2010Q2

REPORT INFORMATION
  Report Type: 
  Country: None (occurrence: None)
  Receive Date: 20100408
  Receipt Date: 20100330
  Transmission Date: 20101027
  Serious: Yes (Other)
  Sender: FDA-Public Use
  Company Number: 2010SP018896

PATIENT
  Age: 35 Year
  Sex: Female

DRUGS (5)
  1. VECURONIUM BROMIDE [Suspect]
     Indication: GENERAL ANAESTHESIA
     Dates: start: 20070101, end: 20070101
  2. ETOMIDATE [Suspect]
     Indication: GENERAL ANAESTHESIA
     Dates: start: 20070101, end: 20070101
  3. FENTANYL-100 [Suspect]
     Indication: GENERAL ANAESTHESIA
     Dates: start: 20070101, end: 20070101
  4. SILDENAFIL CITRATE [Suspect]
     Indication: PULMONARY HYPERTENSION
     Dosage: PO
     Route: 048
  5. SUXAMETHONIUM (SUXAMETHONIUM) [Suspect]
     Indication: GENERAL ANAESTHESIA
     Dates: start: 20070101, end: 20070101

REACTIONS (3)
  - BRADYCARDIA [None]
  - CARDIOVASCULAR DISORDER [None]
  - CONDITION AGGRAVATED [None]
